FAERS Safety Report 16332218 (Version 2)
Quarter: 2019Q2

REPORT INFORMATION
  Report Type: Spontaneous
  Country: GB (occurrence: GB)
  Receive Date: 20190520
  Receipt Date: 20190523
  Transmission Date: 20190711
  Serious: Yes (Death, Hospitalization)
  Sender: FDA-Public Use
  Company Number: GB-CELGENEUS-GBR-20190502623

PATIENT
  Sex: Female

DRUGS (5)
  1. OLAPARIB. [Concomitant]
     Active Substance: OLAPARIB
     Indication: OVARIAN CANCER
     Dosage: 50 MILLIGRAM
     Route: 048
  2. ABRAXANE [Suspect]
     Active Substance: PACLITAXEL
     Route: 041
  3. ABRAXANE [Suspect]
     Active Substance: PACLITAXEL
     Indication: OVARIAN CANCER
     Route: 041
  4. CEDIRANIB. [Concomitant]
     Active Substance: CEDIRANIB
     Indication: OVARIAN CANCER
     Dosage: 30 MILLIGRAM
     Route: 048
  5. CARBOPLATIN. [Concomitant]
     Active Substance: CARBOPLATIN
     Indication: OVARIAN CANCER
     Route: 041

REACTIONS (1)
  - Abdominal distension [Fatal]

NARRATIVE: CASE EVENT DATE: 20190425
